FAERS Safety Report 6875926-X (Version None)
Quarter: 2010Q3

REPORT INFORMATION
  Report Type: 
  Country: None (occurrence: None)
  Receive Date: 20100727
  Receipt Date: 20071112
  Transmission Date: 20110219
  Serious: Yes (Hospitalization, Other)
  Sender: FDA-Public Use
  Company Number: US-PFIZER INC-2006119904

PATIENT
  Sex: Female
  Weight: 122.5 kg

DRUGS (3)
  1. CELEBREX [Suspect]
     Indication: MUSCULOSKELETAL PAIN
     Dates: start: 20010101
  2. VIOXX [Suspect]
     Indication: MUSCULOSKELETAL PAIN
     Dates: start: 20010101
  3. LISINOPRIL [Concomitant]
     Indication: HYPERTENSION
     Dates: start: 19970101

REACTIONS (4)
  - ABDOMINAL PAIN [None]
  - MYOCARDIAL INFARCTION [None]
  - NAUSEA [None]
  - VOMITING [None]
